FAERS Safety Report 6873589-0 (Version None)
Quarter: 2010Q3

REPORT INFORMATION
  Report Type: 
  Country: None (occurrence: None)
  Receive Date: 20100723
  Receipt Date: 20100720
  Transmission Date: 20110219
  Serious: Yes (Death, Hospitalization, Other)
  Sender: FDA-Public Use
  Company Number: US-AMGEN-QUU411994

PATIENT
  Sex: Male
  Weight: 69.9 kg

DRUGS (16)
  1. NPLATE [Suspect]
     Indication: IDIOPATHIC THROMBOCYTOPENIC PURPURA
     Dates: start: 20091117, end: 20100105
  2. UNSPECIFIED ANTINEOPLASTIC AGENT [Suspect]
  3. IMMU-G [Concomitant]
     Dates: start: 20090826
  4. LORAZEPAM [Concomitant]
  5. CHOLESTYRAMINE [Concomitant]
  6. NORCO [Concomitant]
  7. BENADRYL [Concomitant]
  8. VITAMIN B-12 [Concomitant]
  9. ADVAIR DISKUS 100/50 [Concomitant]
  10. ALBUTEROL [Concomitant]
  11. SPIRIVA [Concomitant]
  12. PHENERGAN [Concomitant]
  13. NEURONTIN [Concomitant]
  14. OXYGEN [Concomitant]
  15. SENOKOT [Concomitant]
  16. OXYCONTIN [Concomitant]

REACTIONS (15)
  - ABDOMINAL PAIN [None]
  - ATELECTASIS [None]
  - CHOLECYSTECTOMY [None]
  - DEHYDRATION [None]
  - DISEASE PROGRESSION [None]
  - DRUG INEFFECTIVE [None]
  - ERYTHEMA [None]
  - ESCHERICHIA SEPSIS [None]
  - GENERAL PHYSICAL HEALTH DETERIORATION [None]
  - NAUSEA [None]
  - PNEUMONITIS [None]
  - RENAL FAILURE ACUTE [None]
  - SKIN NODULE [None]
  - THROMBOCYTOPENIA [None]
  - VOMITING [None]
